FAERS Safety Report 25051847 (Version 1)
Quarter: 2025Q1

REPORT INFORMATION
  Report Type: Spontaneous
  Country: CZ (occurrence: CZ)
  Receive Date: 20250307
  Receipt Date: 20250307
  Transmission Date: 20250409
  Serious: Yes (Other)
  Sender: OTSUKA
  Company Number: None

PATIENT
  Age: 33 Year
  Sex: Male
  Weight: 89 kg

DRUGS (2)
  1. ABILIFY MAINTENA [Suspect]
     Active Substance: ARIPIPRAZOLE
     Indication: Mental disorder
     Route: 065
     Dates: start: 2023
  2. CLOZAPINE [Concomitant]
     Active Substance: CLOZAPINE
     Indication: Mental disorder
     Dosage: 100 MG, TID (FIRST YEAR 1 TABLET 3 TIMES A DAY)
     Route: 048
     Dates: start: 2022, end: 2024

REACTIONS (2)
  - Blood testosterone decreased [Not Recovered/Not Resolved]
  - Erectile dysfunction [Not Recovered/Not Resolved]

NARRATIVE: CASE EVENT DATE: 20240101
